FAERS Safety Report 5950579-3 (Version None)
Quarter: 2008Q4

REPORT INFORMATION
  Report Type: 
  Country: None (occurrence: None)
  Receive Date: 20081112
  Receipt Date: 20081105
  Transmission Date: 20090506
  Serious: Yes (Hospitalization, Other)
  Sender: FDA-Public Use
  Company Number: FR-ELI_LILLY_AND_COMPANY-FR200811000893

PATIENT
  Age: 50 Year
  Sex: Female

DRUGS (7)
  1. PROZAC [Suspect]
     Indication: DEPRESSION
     Dates: start: 20060101
  2. PROZAC [Suspect]
     Dosage: 20 MG, DAILY (1/D)
     Route: 048
     Dates: start: 20080826, end: 20080914
  3. THERALENE [Concomitant]
     Route: 048
     Dates: start: 20080905, end: 20080914
  4. ASPEGIC 325 [Concomitant]
     Route: 048
     Dates: start: 20040701
  5. PLAQUENIL [Concomitant]
     Route: 048
     Dates: start: 20040701
  6. KENZEN [Concomitant]
     Dosage: 8 MG, DAILY (1/D)
     Route: 048
     Dates: start: 20040701, end: 20080915
  7. MODURETIC 5-50 [Concomitant]
     Dosage: 5 MG, DAILY (1/D)
     Route: 048
     Dates: start: 20040701, end: 20080915

REACTIONS (8)
  - ANAEMIA [None]
  - AUTOANTIBODY POSITIVE [None]
  - DEEP VEIN THROMBOSIS [None]
  - DEPRESSION [None]
  - LEUKOPENIA [None]
  - PULMONARY EMBOLISM [None]
  - THROMBOCYTOPENIA [None]
  - VAGINAL HAEMORRHAGE [None]
